FAERS Safety Report 24258759 (Version 2)
Quarter: 2024Q3

REPORT INFORMATION
  Report Type: Spontaneous
  Country: PT (occurrence: PT)
  Receive Date: 20240828
  Receipt Date: 20240927
  Transmission Date: 20241016
  Serious: Yes (Hospitalization, Other)
  Sender: SANOFI AVENTIS
  Company Number: PT-SA-2024SA249750

PATIENT
  Age: 58 Year
  Sex: Male

DRUGS (2)
  1. ENOXAPARIN SODIUM [Suspect]
     Active Substance: ENOXAPARIN SODIUM
     Indication: Deep vein thrombosis
     Dosage: UNK
  2. ENOXAPARIN SODIUM [Suspect]
     Active Substance: ENOXAPARIN SODIUM
     Indication: Coagulopathy

REACTIONS (14)
  - Shock haemorrhagic [Recovering/Resolving]
  - Coagulopathy [Unknown]
  - Condition aggravated [Unknown]
  - Anaemia [Unknown]
  - Hypotension [Unknown]
  - Arterial haemorrhage [Recovered/Resolved]
  - Abdominal wall haematoma [Recovered/Resolved]
  - Abdominal pain lower [Recovered/Resolved]
  - Thrombocytopenia [Unknown]
  - Intra-abdominal haematoma [Recovered/Resolved]
  - Condition aggravated [Recovered/Resolved]
  - Asthenia [Recovered/Resolved]
  - Confusional state [Recovered/Resolved]
  - Dyspnoea [Unknown]
